FAERS Safety Report 21134994 (Version 1)
Quarter: 2022Q3

REPORT INFORMATION
  Report Type: Report from Study
  Country: GB (occurrence: GB)
  Receive Date: 20220727
  Receipt Date: 20220727
  Transmission Date: 20221027
  Serious: Yes (Other)
  Sender: FDA-Public Use
  Company Number: GB-SAMSUNG BIOEPIS-SB-2022-17761

PATIENT
  Sex: Female

DRUGS (2)
  1. IMRALDI [Suspect]
     Active Substance: ADALIMUMAB
     Indication: Arthritis
     Route: 058
     Dates: start: 20190123
  2. ETANERCEPT [Suspect]
     Active Substance: ETANERCEPT
     Indication: Product used for unknown indication
     Dosage: UNKNOWN
     Route: 065

REACTIONS (18)
  - Bursitis [Unknown]
  - Sinusitis [Unknown]
  - Nasopharyngitis [Unknown]
  - Accident at work [Unknown]
  - Pain [Unknown]
  - Fatigue [Unknown]
  - Injection site pain [Unknown]
  - Headache [Unknown]
  - Diarrhoea [Unknown]
  - Limb mass [Unknown]
  - Mobility decreased [Unknown]
  - Therapeutic product effect incomplete [Unknown]
  - Pain in extremity [Unknown]
  - Loss of personal independence in daily activities [Unknown]
  - Grip strength decreased [Unknown]
  - Muscular weakness [Unknown]
  - Pruritus [Recovering/Resolving]
  - Product use in unapproved indication [Unknown]
